FAERS Safety Report 9516885 (Version 1)
Quarter: 2013Q3

REPORT INFORMATION
  Report Type: Spontaneous
  Country: US (occurrence: US)
  Receive Date: 20130911
  Receipt Date: 20130911
  Transmission Date: 20140515
  Serious: Yes (Other)
  Sender: FDA-Public Use
  Company Number: US-BRISTOL-MYERS SQUIBB COMPANY-19362730

PATIENT
  Age: 60 Year
  Sex: Female

DRUGS (14)
  1. ABATACEPT SUBQ INJECTION 125MG/ML [Suspect]
     Route: 058
  2. CYMBALTA [Concomitant]
  3. XANAX [Concomitant]
  4. RESTASIS [Concomitant]
  5. PLAQUENIL [Concomitant]
  6. AMBIEN [Concomitant]
  7. LYRICA [Concomitant]
  8. FOLIC ACID [Concomitant]
  9. HYDROCHLOROTHIAZIDE [Concomitant]
  10. NEXIUM [Concomitant]
  11. LIDODERM [Concomitant]
  12. FLEXERIL [Concomitant]
  13. VESICARE [Concomitant]
  14. METHOTREXATE SODIUM INJ [Concomitant]

REACTIONS (1)
  - Injury [Unknown]
